FAERS Safety Report 22176459 (Version 2)
Quarter: 2023Q2

REPORT INFORMATION
  Report Type: Spontaneous
  Country: US (occurrence: US)
  Receive Date: 20230405
  Receipt Date: 20230412
  Transmission Date: 20230722
  Serious: No
  Sender: FDA-Public Use
  Company Number: US-Calliditas-2023CAL00319

PATIENT
  Age: 23 Year
  Sex: Female

DRUGS (9)
  1. TARPEYO [Suspect]
     Active Substance: BUDESONIDE
     Indication: IgA nephropathy
     Dosage: 16 MG (4 MG CAPSULES) ONCE DAILY
     Route: 048
     Dates: start: 20230305
  2. CARVEDILOL [Concomitant]
     Active Substance: CARVEDILOL
  3. LOSARTAN [Concomitant]
     Active Substance: LOSARTAN
  4. LEXAPRO [Concomitant]
     Active Substance: ESCITALOPRAM OXALATE
  5. BUMETANIDE [Concomitant]
     Active Substance: BUMETANIDE
  6. ASPIRIN [Concomitant]
     Active Substance: ASPIRIN
  7. MAGNESIUM OXIDE [Concomitant]
     Active Substance: MAGNESIUM OXIDE
  8. CHOLECALCIFEROL [Concomitant]
     Active Substance: CHOLECALCIFEROL
  9. CALCIUM CARBONATE [Concomitant]
     Active Substance: CALCIUM CARBONATE

REACTIONS (3)
  - Nausea [Not Recovered/Not Resolved]
  - Gastrooesophageal reflux disease [Not Recovered/Not Resolved]
  - Vomiting [Not Recovered/Not Resolved]

NARRATIVE: CASE EVENT DATE: 20230301
